FAERS Safety Report 10261568 (Version 3)
Quarter: 2014Q4

REPORT INFORMATION
  Report Type: Report from Study
  Country: US (occurrence: US)
  Receive Date: 20140626
  Receipt Date: 20141110
  Transmission Date: 20150528
  Serious: Yes (Other)
  Sender: FDA-Public Use
  Company Number: PHEH2014US012761

PATIENT
  Age: 50 Year
  Sex: Female
  Weight: 57.14 kg

DRUGS (1)
  1. GILENYA [Suspect]
     Active Substance: FINGOLIMOD HYDROCHLORIDE
     Indication: MULTIPLE SCLEROSIS
     Dosage: 0.5 MG, DAILY
     Route: 048

REACTIONS (12)
  - Syncope [Recovered/Resolved]
  - Fatigue [Recovered/Resolved]
  - Poor quality sleep [Unknown]
  - Feeling cold [Unknown]
  - Joint injury [Recovered/Resolved]
  - Pain in extremity [Recovered/Resolved]
  - Musculoskeletal pain [Recovered/Resolved]
  - Muscle spasms [Recovered/Resolved]
  - Hot flush [Unknown]
  - Memory impairment [Unknown]
  - Asthenia [Recovered/Resolved]
  - Retinal cyst [Unknown]

NARRATIVE: CASE EVENT DATE: 20120704
